FAERS Safety Report 8078975-1 (Version None)
Quarter: 2012Q1

REPORT INFORMATION
  Report Type: 
  Country: None (occurrence: None)
  Receive Date: 20120128
  Receipt Date: 20110621
  Transmission Date: 20120608
  Serious: No
  Sender: FDA-Public Use
  Company Number: US-ABBOTT-11P-163-0734188-00

PATIENT
  Age: 89 Year
  Sex: Female

DRUGS (10)
  1. MAGNESIUM [Concomitant]
     Indication: MINERAL SUPPLEMENTATION
     Dosage: OVER THE COUNTER, DAILY
  2. SIMVASTATIN [Concomitant]
     Indication: BLOOD CHOLESTEROL INCREASED
  3. PLAVIX [Concomitant]
     Indication: BLOOD CHOLESTEROL INCREASED
  4. METFFORMIN HYDROCHLORIDE [Concomitant]
     Indication: TYPE 2 DIABETES MELLITUS
  5. FISH OIL [Concomitant]
     Indication: SUPPLEMENTATION THERAPY
     Dosage: OVER THE COUNTER, DAILY
  6. ATENOLOL [Concomitant]
     Indication: CARDIAC DISORDER
  7. LEVOTHYROXINE SODIUM [Concomitant]
     Indication: HYPOTHYROIDISM
  8. CITALOPRAM [Concomitant]
     Indication: ANXIETY
  9. HUMIRA [Suspect]
     Indication: PSORIASIS
     Dates: start: 20101001
  10. MICARDIS [Concomitant]
     Indication: CARDIAC DISORDER
     Dosage: 80/12.5MG, DAILY

REACTIONS (3)
  - INCORRECT ROUTE OF DRUG ADMINISTRATION [None]
  - WRONG TECHNIQUE IN DRUG USAGE PROCESS [None]
  - INJECTION SITE PAIN [None]
